FAERS Safety Report 6701157-X (Version None)
Quarter: 2010Q2

REPORT INFORMATION
  Report Type: 
  Country: None (occurrence: None)
  Receive Date: 20100428
  Receipt Date: 20100426
  Transmission Date: 20101027
  Serious: Yes (Other)
  Sender: FDA-Public Use
  Company Number: GB-MERCK-1004GBR00104

PATIENT
  Age: 65 Year
  Sex: Male
  Weight: 120 kg

DRUGS (1)
  1. JANUVIA [Suspect]
     Indication: DIABETES MELLITUS
     Route: 048
     Dates: start: 20100323, end: 20100419

REACTIONS (3)
  - CONFUSIONAL STATE [None]
  - DECREASED APPETITE [None]
  - DYSPEPSIA [None]
